FAERS Safety Report 4980280-4 (Version None)
Quarter: 2006Q2

REPORT INFORMATION
  Report Type: 
  Country: None (occurrence: None)
  Receive Date: 20060424
  Receipt Date: 20060412
  Transmission Date: 20061013
  Serious: Yes (Hospitalization)
  Sender: FDA-Public Use
  Company Number: PHNU2006DE01665

PATIENT

DRUGS (1)
  1. CLOZAPINE [Suspect]
     Dosage: 100 MG/D
     Dates: start: 20060412

REACTIONS (3)
  - MEDICATION ERROR [None]
  - RESTLESSNESS [None]
  - SOMNOLENCE [None]
